FAERS Safety Report 11270853 (Version 1)
Quarter: 2015Q3

REPORT INFORMATION
  Report Type: Report from Study
  Country: US (occurrence: US)
  Receive Date: 20150714
  Receipt Date: 20150714
  Transmission Date: 20151125
  Serious: Yes (Other)
  Sender: FDA-Public Use
  Company Number: US-SANOFI-AVENTIS-2013SA090217

PATIENT
  Age: 59 Year
  Sex: Male

DRUGS (2)
  1. AUBAGIO [Suspect]
     Active Substance: TERIFLUNOMIDE
     Indication: MULTIPLE SCLEROSIS
     Dosage: TAKEN FROM: 2 YEAR AGO
     Route: 048
     Dates: start: 20130104
  2. AMPYRA [Concomitant]
     Active Substance: DALFAMPRIDINE
     Indication: MULTIPLE SCLEROSIS
     Dates: start: 20141017, end: 20150224

REACTIONS (4)
  - Liver function test abnormal [Recovered/Resolved]
  - Secondary progressive multiple sclerosis [Unknown]
  - Drug ineffective [Unknown]
  - Balance disorder [Unknown]
